FAERS Safety Report 23388383 (Version 1)
Quarter: 2024Q1

REPORT INFORMATION
  Report Type: Spontaneous
  Country: US (occurrence: None)
  Receive Date: 20240110
  Receipt Date: 20240110
  Transmission Date: 20240410
  Serious: Yes (Death, Hospitalization)
  Sender: FDA-Public Use
  Company Number: None

PATIENT
  Age: 33 Month
  Sex: Male
  Weight: 14 kg

DRUGS (16)
  1. CARBOPLATIN [Suspect]
     Active Substance: CARBOPLATIN
     Dates: end: 20231127
  2. CYCLOPHOSPHAMIDE [Suspect]
     Active Substance: CYCLOPHOSPHAMIDE
     Dates: end: 20231110
  3. ETOPOSIDE [Suspect]
     Active Substance: ETOPOSIDE
     Dates: end: 20231129
  4. FILGRASTIM [Suspect]
     Active Substance: FILGRASTIM
     Dates: end: 20231208
  5. IFOSFAMIDE [Suspect]
     Active Substance: IFOSFAMIDE
     Dates: end: 20231129
  6. MESNA [Suspect]
     Active Substance: MESNA
     Dates: end: 20231129
  7. TOPOTECAN [Suspect]
     Active Substance: TOPOTECAN HYDROCHLORIDE
     Dates: end: 20231110
  8. PEG 3350 [Concomitant]
     Active Substance: POLYETHYLENE GLYCOL 3350
  9. CEFTRIAXONE [Concomitant]
     Active Substance: CEFTRIAXONE\CEFTRIAXONE SODIUM
  10. DEXAMETHASONE [Concomitant]
     Active Substance: DEXAMETHASONE
  11. DIMENHYDRINATE [Concomitant]
     Active Substance: DIMENHYDRINATE
  12. FUROSEMIDE [Concomitant]
     Active Substance: FUROSEMIDE
  13. HYDROMORPHONE [Concomitant]
     Active Substance: HYDROMORPHONE
  14. MIDAZOLAM [Concomitant]
  15. ONDANSETRON [Concomitant]
  16. PROPOFOL [Concomitant]

REACTIONS (3)
  - Nephroblastoma [None]
  - Malignant neoplasm progression [None]
  - Superior vena cava syndrome [None]

NARRATIVE: CASE EVENT DATE: 20231219
